FAERS Safety Report 20722316 (Version 1)
Quarter: 2022Q2

REPORT INFORMATION
  Report Type: Report from Study
  Country: AU (occurrence: AU)
  Receive Date: 20220418
  Receipt Date: 20220418
  Transmission Date: 20220720
  Serious: Yes (Life-Threatening, Hospitalization)
  Sender: FDA-Public Use
  Company Number: AU-FEDR-MF-002-1011002-20210525-0003SG

PATIENT
  Age: 74 Year
  Sex: Male
  Weight: 75 kg

DRUGS (21)
  1. RUXOLITINIB [Suspect]
     Active Substance: RUXOLITINIB
     Indication: Myelofibrosis
     Route: 048
     Dates: start: 20210331, end: 20210914
  2. ALLOPURINOL [Concomitant]
     Active Substance: ALLOPURINOL
     Indication: Prophylaxis
     Dosage: 400 MG
     Route: 048
     Dates: start: 2019
  3. ALLOPURINOL [Concomitant]
     Active Substance: ALLOPURINOL
     Indication: Gout
     Dosage: 300 MG
     Route: 048
     Dates: start: 20210921
  4. LOPERAMIDE HYDROCHLORIDE [Concomitant]
     Active Substance: LOPERAMIDE HYDROCHLORIDE
     Indication: Diarrhoea
     Dosage: 2 MG?FREQUENCY : PRN
     Route: 048
     Dates: start: 2019
  5. MAGNESIUM [Concomitant]
     Active Substance: MAGNESIUM
     Indication: Muscle spasms
     Dosage: 500 MG
     Route: 048
     Dates: start: 202003
  6. PANTOPRAZOLE [Concomitant]
     Active Substance: PANTOPRAZOLE
     Indication: Prophylaxis
     Dosage: 20 MG
     Route: 048
     Dates: start: 202001
  7. PANTOPRAZOLE [Concomitant]
     Active Substance: PANTOPRAZOLE
     Indication: Dyspepsia
     Dosage: 20 MG
     Route: 048
     Dates: start: 20210906
  8. ZINC [Concomitant]
     Active Substance: ZINC
     Indication: Prophylaxis
     Dosage: 50 MG
     Route: 048
     Dates: start: 202003
  9. AMITRIPTYLINE [Concomitant]
     Active Substance: AMITRIPTYLINE
     Indication: Sciatica
     Dosage: 10 MG
     Route: 048
     Dates: start: 20210914
  10. COLCHICINE [Concomitant]
     Active Substance: COLCHICINE
     Indication: Sciatica
     Dosage: 500 UG
     Route: 048
     Dates: start: 20210815
  11. ENOXAPARIN [Concomitant]
     Active Substance: ENOXAPARIN
     Indication: Pulmonary embolism
     Dosage: 80 MG
     Route: 058
     Dates: start: 20210921
  12. IVERMECTIN [Concomitant]
     Active Substance: IVERMECTIN
     Indication: Rosacea
     Dosage: 10 MG/G
     Route: 061
     Dates: start: 20210803
  13. OXYCODONE HYDROCHLORIDE [Concomitant]
     Active Substance: OXYCODONE HYDROCHLORIDE
     Indication: Sciatica
     Dosage: 5 MG
     Route: 048
     Dates: start: 20210914
  14. ACETAMINOPHEN\CODEINE PHOSPHATE [Concomitant]
     Active Substance: ACETAMINOPHEN\CODEINE PHOSPHATE
     Indication: Sciatica
     Dosage: 1 DOSAGE FORM = 30/500 - 60/500 MG?FREQUENCY : PRN
     Route: 048
     Dates: start: 20210909
  15. PREDNISOLONE [Concomitant]
     Active Substance: PREDNISOLONE
     Indication: Sciatica
     Dosage: 10 MG
     Route: 048
     Dates: start: 20210817
  16. PREDNISOLONE [Concomitant]
     Active Substance: PREDNISOLONE
     Dosage: 10 MG
     Route: 048
     Dates: start: 20211001, end: 20211014
  17. PREDNISOLONE [Concomitant]
     Active Substance: PREDNISOLONE
     Dosage: 5 MG
     Route: 048
     Dates: start: 20211015
  18. THIAMINE [Concomitant]
     Active Substance: THIAMINE
     Indication: Prophylaxis
     Dosage: 100 MG
     Route: 048
     Dates: start: 20211001
  19. BEROCCA [Concomitant]
     Active Substance: VITAMINS
     Indication: Prophylaxis
     Dosage: 1 DOSAGE FORM =1 TABLET X 1 X 2 DAYS
     Route: 048
     Dates: start: 202003
  20. HYDROXYUREA [Concomitant]
     Active Substance: HYDROXYUREA
     Indication: Myelofibrosis
     Dosage: 1000 MG X 2 X 1 DAYS
     Dates: start: 20210921, end: 20211001
  21. INDOMETHACIN [Concomitant]
     Active Substance: INDOMETHACIN
     Indication: Gout
     Dosage: 25 MG X 2 X 1 DAYS
     Dates: start: 20210413

REACTIONS (1)
  - Hypocalcaemia [Recovered/Resolved]

NARRATIVE: CASE EVENT DATE: 20211013
